FAERS Safety Report 8709475 (Version 4)
Quarter: 2013Q1

REPORT INFORMATION
  Report Type: Spontaneous
  Country: US (occurrence: US)
  Receive Date: 20120806
  Receipt Date: 20130218
  Transmission Date: 20140127
  Serious: Yes (Other)
  Sender: FDA-Public Use
  Company Number: US-ASTRAZENECA-2012SE16629

PATIENT
  Age: 55 Year
  Sex: Male

DRUGS (2)
  1. NEXIUM [Suspect]
     Route: 048
  2. PRILOSEC OTC [Suspect]
     Route: 048

REACTIONS (12)
  - Cervical vertebral fracture [Unknown]
  - Intervertebral disc protrusion [Unknown]
  - Foot fracture [Unknown]
  - Sleep disorder due to a general medical condition [Unknown]
  - Hyperchlorhydria [Unknown]
  - Adverse event [Unknown]
  - Arthropathy [Unknown]
  - Dyspepsia [Unknown]
  - Gastrooesophageal reflux disease [Unknown]
  - Aphagia [Unknown]
  - Intentional drug misuse [Unknown]
  - Drug ineffective [Unknown]
